FAERS Safety Report 10078312 (Version 1)
Quarter: 2014Q2

REPORT INFORMATION
  Report Type: Spontaneous
  Country: US (occurrence: US)
  Receive Date: 20140415
  Receipt Date: 20140415
  Transmission Date: 20141212
  Serious: Yes (Life-Threatening, Hospitalization)
  Sender: FDA-Public Use
  Company Number: US-ROCHE-1377812

PATIENT
  Sex: Female

DRUGS (3)
  1. TAMIFLU [Suspect]
     Indication: INFLUENZA
     Dosage: RECEIVED FULL COURSE OF TREATMENT, START DATE OF TREATMENT OCT/2011.
     Route: 065
  2. LAMOTRIGINE [Concomitant]
  3. OLANZAPINE [Concomitant]

REACTIONS (7)
  - Depression [Not Recovered/Not Resolved]
  - Depressive symptom [Not Recovered/Not Resolved]
  - Suicide attempt [Not Recovered/Not Resolved]
  - Suicidal ideation [Not Recovered/Not Resolved]
  - Pain [Unknown]
  - Arthralgia [Unknown]
  - Pituitary tumour benign [Not Recovered/Not Resolved]
